FAERS Safety Report 10238750 (Version 1)
Quarter: 2014Q2

REPORT INFORMATION
  Report Type: Spontaneous
  Country: US (occurrence: None)
  Receive Date: 20140612
  Receipt Date: 20140612
  Transmission Date: 20141212
  Serious: Yes (Death)
  Sender: FDA-Public Use
  Company Number: UNT-2014-001445

PATIENT
  Sex: Male

DRUGS (1)
  1. REMODULIN [Suspect]
     Indication: PULMONARY ARTERIAL HYPERTENSION
     Dosage: 0.069/UG/KG/MT.
     Route: 058
     Dates: start: 20111021, end: 20140407

REACTIONS (1)
  - Death [None]
